FAERS Safety Report 16037948 (Version 4)
Quarter: 2020Q3

REPORT INFORMATION
  Report Type: Report from Study
  Country: US (occurrence: US)
  Receive Date: 20190305
  Receipt Date: 20200712
  Transmission Date: 20201102
  Serious: Yes (Other)
  Sender: FDA-Public Use
  Company Number: PHEH2019US009252

PATIENT
  Sex: Male
  Weight: 108.8 kg

DRUGS (1)
  1. ENTRESTO [Suspect]
     Active Substance: SACUBITRIL\VALSARTAN
     Indication: CARDIAC FAILURE CHRONIC
     Dosage: 50 MG (24/26 MG), ONCE2SDO
     Route: 048

REACTIONS (3)
  - Dyspnoea [Unknown]
  - Myocardial infarction [Unknown]
  - Weight decreased [Unknown]
